FAERS Safety Report 23668515 (Version 1)
Quarter: 2024Q1

REPORT INFORMATION
  Report Type: Spontaneous
  Country: CA (occurrence: None)
  Receive Date: 20240325
  Receipt Date: 20240325
  Transmission Date: 20240409
  Serious: Yes (Other)
  Sender: FDA-Public Use
  Company Number: CA-PFIZER INC-202400068739

PATIENT
  Age: 4 Decade
  Sex: Female

DRUGS (2)
  1. METHOTREXATE [Suspect]
     Active Substance: METHOTREXATE
     Indication: Corneal epithelial downgrowth
  2. FLUOROURACIL [Concomitant]
     Active Substance: FLUOROURACIL
     Indication: Corneal epithelial downgrowth

REACTIONS (5)
  - Product use in unapproved indication [Unknown]
  - Glaucoma [Unknown]
  - Hypotony of eye [Unknown]
  - Keratopathy [Unknown]
  - Retinal detachment [Unknown]
